FAERS Safety Report 18325324 (Version 1)
Quarter: 2020Q3

REPORT INFORMATION
  Report Type: Spontaneous
  Country: CA (occurrence: CA)
  Receive Date: 20200929
  Receipt Date: 20200929
  Transmission Date: 20201103
  Serious: Yes (Death)
  Sender: FDA-Public Use
  Company Number: CA-PFIZER INC-2020342526

PATIENT
  Age: 65 Year
  Sex: Male

DRUGS (5)
  1. LORBRENA [Suspect]
     Active Substance: LORLATINIB
     Dosage: 75 MG (FOR FIRST 14 DAYS)
     Dates: start: 20200904
  2. ELIQUIS [Concomitant]
     Active Substance: APIXABAN
  3. ZOPICLONE [Concomitant]
     Active Substance: ZOPICLONE
  4. HYDROMORPHONE [Concomitant]
     Active Substance: HYDROMORPHONE
  5. TELMISARTAN. [Concomitant]
     Active Substance: TELMISARTAN

REACTIONS (1)
  - Death [Fatal]

NARRATIVE: CASE EVENT DATE: 20200923
